FAERS Safety Report 4545804-X (Version None)
Quarter: 2005Q1

REPORT INFORMATION
  Report Type: 
  Country: None (occurrence: None)
  Receive Date: 20050103
  Receipt Date: 20041213
  Transmission Date: 20050727
  Serious: Yes (Other)
  Sender: FDA-Public Use
  Company Number: US_0407104490

PATIENT
  Age: 44 Year
  Sex: Female
  Weight: 108 kg

DRUGS (22)
  1. ZYPREXA [Suspect]
     Dosage: 15 MG
     Dates: start: 19990101, end: 20030101
  2. KEPLEX (CEFALEXIN MONOHYDRATE) [Concomitant]
  3. MULTIVITAMINS NOS (MULTIVITAMINS NOS) [Concomitant]
  4. GEODON [Concomitant]
  5. QUETIAPINE [Concomitant]
  6. RISPERIDONE [Concomitant]
  7. HALOPERIDOL [Concomitant]
  8. NAVANE [Concomitant]
  9. DEPAKOTE [Concomitant]
  10. BUPROPION HCL [Concomitant]
  11. CELEXA [Concomitant]
  12. SYMBYAX [Concomitant]
  13. PAXIL [Concomitant]
  14. VENLAFAXINE HCL [Concomitant]
  15. TRAZODONE (TRAZODONE) [Concomitant]
  16. LUVOX [Concomitant]
  17. INSULIN [Concomitant]
  18. ORAL CONTRACEPTIVE NOS [Concomitant]
  19. LORAZEPAM [Concomitant]
  20. ALPRAZOLAM [Concomitant]
  21. ARTANE [Concomitant]
  22. DEPO-PROVERA [Concomitant]

REACTIONS (50)
  - ABDOMINAL PAIN UPPER [None]
  - ADRENAL DISORDER [None]
  - ANXIETY [None]
  - BLOOD CHOLESTEROL ABNORMAL [None]
  - BLOOD CREATINE PHOSPHOKINASE INCREASED [None]
  - BLOOD OESTROGEN DECREASED [None]
  - BLOOD PRESSURE INCREASED [None]
  - BLOOD TRIGLYCERIDES INCREASED [None]
  - BLOOD UREA DECREASED [None]
  - CHEST DISCOMFORT [None]
  - CHOLELITHIASIS [None]
  - CONFUSIONAL STATE [None]
  - CONSTIPATION [None]
  - DIABETES MELLITUS [None]
  - DIARRHOEA [None]
  - DIZZINESS [None]
  - FATIGUE [None]
  - FOOD CRAVING [None]
  - HALLUCINATION, AUDITORY [None]
  - HEADACHE [None]
  - HORMONE LEVEL ABNORMAL [None]
  - HYPERSOMNIA [None]
  - HYPERVENTILATION [None]
  - HYPOAESTHESIA [None]
  - INCREASED APPETITE [None]
  - INJECTION SITE HAEMORRHAGE [None]
  - LEUKOCYTOSIS [None]
  - MEDIASTINAL DISORDER [None]
  - MENORRHAGIA [None]
  - MONOCYTE COUNT INCREASED [None]
  - NAUSEA [None]
  - NEUROPATHY [None]
  - OSTEOPOROSIS [None]
  - OVARIAN CYST [None]
  - PAIN [None]
  - PANCREATITIS [None]
  - PANIC ATTACK [None]
  - PCO2 DECREASED [None]
  - PEPTIC ULCER [None]
  - PREMENSTRUAL SYNDROME [None]
  - REFUSAL OF TREATMENT BY PATIENT [None]
  - SEXUAL ACTIVITY INCREASED [None]
  - SKIN BURNING SENSATION [None]
  - SOMNOLENCE [None]
  - TACHYCARDIA [None]
  - TEARFULNESS [None]
  - UMBILICAL HERNIA [None]
  - URINARY INCONTINENCE [None]
  - URTICARIA [None]
  - WEIGHT INCREASED [None]
